FAERS Safety Report 20721782 (Version 3)
Quarter: 2022Q3

REPORT INFORMATION
  Report Type: Spontaneous
  Country: US (occurrence: US)
  Receive Date: 20220418
  Receipt Date: 20220727
  Transmission Date: 20221026
  Serious: No
  Sender: FDA-Public Use
  Company Number: US-PFIZER INC-2020498912

PATIENT
  Age: 65 Year
  Sex: Female
  Weight: 74 kg

DRUGS (2)
  1. XELJANZ [Suspect]
     Active Substance: TOFACITINIB CITRATE
     Dosage: 5 MG, 2X/DAY
     Route: 048
  2. XELJANZ [Suspect]
     Active Substance: TOFACITINIB CITRATE
     Dosage: 15 MG, DAILY (TWO 5MG TABLETS IN THE MORNING, AND ONE 5MG TABLET AT NIGHT)(5MG TAKE 3 TABLETS DAILY)

REACTIONS (2)
  - Off label use [Unknown]
  - Cystitis [Unknown]
